FAERS Safety Report 5299073-6 (Version None)
Quarter: 2007Q2

REPORT INFORMATION
  Report Type: 
  Country: None (occurrence: None)
  Receive Date: 20070417
  Receipt Date: 20070413
  Transmission Date: 20071010
  Serious: Yes (Other)
  Sender: FDA-Public Use
  Company Number: US-GLAXOSMITHKLINE-A0645058A

PATIENT
  Age: 75 Year
  Sex: Male
  Weight: 79.1 kg

DRUGS (3)
  1. AVODART [Suspect]
     Indication: BENIGN PROSTATIC HYPERPLASIA
     Dosage: .5MG PER DAY
     Route: 048
     Dates: end: 20070322
  2. FLOMAX [Suspect]
     Dosage: .4MG PER DAY
     Route: 048
     Dates: end: 20070322
  3. KETOPROFEN [Suspect]

REACTIONS (5)
  - DRUG INTERACTION [None]
  - DRY SKIN [None]
  - HYPERSENSITIVITY [None]
  - OEDEMA PERIPHERAL [None]
  - SKIN DISCOLOURATION [None]
